FAERS Safety Report 4971768-0 (Version None)
Quarter: 2006Q2

REPORT INFORMATION
  Report Type: 
  Country: None (occurrence: None)
  Receive Date: 20060406
  Receipt Date: 20060330
  Transmission Date: 20061013
  Serious: Yes (Other)
  Sender: FDA-Public Use
  Company Number: 2006-03-2014

PATIENT

DRUGS (2)
  1. TEMODAL [Suspect]
     Dosage: ORAL
     Route: 048
  2. CHEMOTHERAPY REGIMENS [Suspect]

REACTIONS (2)
  - CEREBRAL THROMBOSIS [None]
  - VENOUS THROMBOSIS [None]
